FAERS Safety Report 6176602-1 (Version None)
Quarter: 2009Q2

REPORT INFORMATION
  Report Type: 
  Country: None (occurrence: None)
  Receive Date: 20090501
  Receipt Date: 20090424
  Transmission Date: 20091009
  Serious: Yes (Other)
  Sender: FDA-Public Use
  Company Number: AU-GENENTECH-282025

PATIENT
  Age: 56 Year
  Sex: Male

DRUGS (2)
  1. EFALIZUMAB [Suspect]
     Indication: PSORIASIS
     Dosage: 1 MG/KG, 1/WEEK
  2. EFALIZUMAB [Suspect]

REACTIONS (1)
  - SEBORRHOEIC KERATOSIS [None]
